FAERS Safety Report 8362415 (Version 7)
Quarter: 2012Q4

REPORT INFORMATION
  Report Type: 
  Country: US (occurrence: US)
  Receive Date: 20120130
  Receipt Date: 20121220
  Transmission Date: 20130627
  Serious: Yes (Hospitalization, Other)
  Sender: FDA-Public Use
  Company Number: US-ROCHE-1034499

PATIENT
  Age: 35 None
  Sex: Male

DRUGS (9)
  1. ACCUTANE [Suspect]
     Indication: ACNE
     Dosage: first therapy
     Route: 048
     Dates: start: 19870618
  2. ACCUTANE [Suspect]
     Route: 048
     Dates: start: 19870619
  3. ACCUTANE [Suspect]
     Route: 048
     Dates: start: 19880404
  4. ACCUTANE [Suspect]
     Route: 048
     Dates: start: 19880601, end: 19890306
  5. ACCUTANE [Suspect]
     Route: 048
     Dates: start: 19891019
  6. ACCUTANE [Suspect]
     Route: 048
     Dates: start: 19891128
  7. ACCUTANE [Suspect]
     Route: 048
     Dates: start: 19900103
  8. ACCUTANE [Suspect]
     Route: 048
     Dates: start: 19900124
  9. ACCUTANE [Suspect]
     Route: 048
     Dates: start: 19920908, end: 19930105

REACTIONS (10)
  - Crohn^s disease [Unknown]
  - Small intestinal obstruction [Unknown]
  - Intestinal perforation [Unknown]
  - Enterocutaneous fistula [Unknown]
  - Inflammatory bowel disease [Unknown]
  - Anxiety [Unknown]
  - Depression [Unknown]
  - Lip dry [Unknown]
  - Blood triglycerides increased [Unknown]
  - Osteopenia [Unknown]
